FAERS Safety Report 20596723 (Version 2)
Quarter: 2022Q2

REPORT INFORMATION
  Report Type: Spontaneous
  Country: US (occurrence: US)
  Receive Date: 20220315
  Receipt Date: 20220421
  Transmission Date: 20220721
  Serious: No
  Sender: FDA-Public Use
  Company Number: US-PFIZER INC-202200080432

PATIENT
  Age: 14 Year
  Sex: Male

DRUGS (2)
  1. GENOTROPIN [Suspect]
     Active Substance: SOMATROPIN
     Dosage: 2.5 MG
  2. GENOTROPIN [Suspect]
     Active Substance: SOMATROPIN
     Dosage: 2.6 MG

REACTIONS (4)
  - Product prescribing error [Unknown]
  - Poor quality device used [Unknown]
  - Device use error [Unknown]
  - Needle issue [Unknown]

NARRATIVE: CASE EVENT DATE: 20220201
